FAERS Safety Report 16083555 (Version 6)
Quarter: 2021Q1

REPORT INFORMATION
  Report Type: Report from Study
  Country: JP (occurrence: JP)
  Receive Date: 20190318
  Receipt Date: 20210202
  Transmission Date: 20210419
  Serious: Yes (Death, Hospitalization)
  Sender: FDA-Public Use
  Company Number: JP-EISAI MEDICAL RESEARCH-EC-2019-053556

PATIENT
  Age: 60 Year
  Sex: Male
  Weight: 75 kg

DRUGS (15)
  1. TAKECAB [Concomitant]
     Active Substance: VONOPRAZAN FUMARATE
  2. INSULIN GLARGINE [Concomitant]
     Active Substance: INSULIN GLARGINE
  3. PROMAC [Concomitant]
     Active Substance: NITROFURANTOIN
  4. LIVACT [Concomitant]
     Active Substance: AMINO ACIDS, SOURCE UNSPECIFIED
  5. SPIRONOLACTONE. [Concomitant]
     Active Substance: SPIRONOLACTONE
  6. RESTAMIN [Concomitant]
     Active Substance: DIPHENHYDRAMINE
  7. LENVATINIB [Suspect]
     Active Substance: LENVATINIB
     Indication: HEPATOCELLULAR CARCINOMA
     Route: 048
     Dates: start: 20190219, end: 20190311
  8. HUMALOG [Concomitant]
     Active Substance: INSULIN LISPRO
  9. PORTOLAC [Concomitant]
     Active Substance: LACTITOL
  10. ACUATIM [Concomitant]
     Active Substance: NADIFLOXACIN
  11. LENVATINIB [Suspect]
     Active Substance: LENVATINIB
     Route: 048
     Dates: start: 2019, end: 20190426
  12. L?CARTIN FF [Concomitant]
     Active Substance: LEVOCARNITINE
  13. NIVOLUMAB [Suspect]
     Active Substance: NIVOLUMAB
     Indication: HEPATOCELLULAR CARCINOMA
     Route: 041
     Dates: start: 20190219, end: 20190416
  14. FUROSEMIDE. [Concomitant]
     Active Substance: FUROSEMIDE
  15. JANUVIA [Concomitant]
     Active Substance: SITAGLIPTIN PHOSPHATE

REACTIONS (2)
  - Hepatic encephalopathy [Recovered/Resolved]
  - Hepatic failure [Fatal]

NARRATIVE: CASE EVENT DATE: 20190311
